FAERS Safety Report 18544581 (Version 1)
Quarter: 2020Q4

REPORT INFORMATION
  Report Type: Spontaneous
  Country: BR (occurrence: BR)
  Receive Date: 20201125
  Receipt Date: 20201125
  Transmission Date: 20210114
  Serious: Yes (Other)
  Sender: FDA-Public Use
  Company Number: NVSC2020BR310468

PATIENT
  Age: 53 Year
  Sex: Female

DRUGS (1)
  1. FULVESTRANT. [Suspect]
     Active Substance: FULVESTRANT
     Indication: BREAST CANCER METASTATIC
     Dosage: UNK
     Route: 065

REACTIONS (8)
  - Breast cancer metastatic [Unknown]
  - Metabolic disorder [Unknown]
  - Bone neoplasm [Unknown]
  - Malignant neoplasm progression [Unknown]
  - Intervertebral disc protrusion [Unknown]
  - Spinal pain [Unknown]
  - Osteolysis [Unknown]
  - Spinal cord compression [Unknown]
